FAERS Safety Report 6474641-4 (Version None)
Quarter: 2009Q4

REPORT INFORMATION
  Report Type: 
  Country: None (occurrence: None)
  Receive Date: 20091204
  Receipt Date: 20090414
  Transmission Date: 20100525
  Serious: Yes (Death, Life-Threatening, Congenital Anomaly, Other)
  Sender: FDA-Public Use
  Company Number: US-ELI_LILLY_AND_COMPANY-US200901002618

PATIENT
  Sex: Female

DRUGS (1)
  1. PROZAC [Suspect]
     Dosage: UNK, UNKNOWN
     Route: 064

REACTIONS (22)
  - ABDOMINAL MASS [None]
  - ANGIOPATHY [None]
  - ARRHYTHMIA [None]
  - BRADYCARDIA [None]
  - CARDIO-RESPIRATORY ARREST NEONATAL [None]
  - COAGULOPATHY [None]
  - CONGENITAL DIAPHRAGMATIC HERNIA [None]
  - DEATH [None]
  - DEXTROCARDIA [None]
  - DRUG EXPOSURE DURING PREGNANCY [None]
  - DYSKINESIA [None]
  - GASTROINTESTINAL DISORDER [None]
  - HAEMORRHAGIC DISORDER [None]
  - LUNG DISORDER [None]
  - NEONATAL RESPIRATORY DISTRESS SYNDROME [None]
  - OLIGURIA [None]
  - PAIN [None]
  - PARTIAL SEIZURES [None]
  - POOR PERIPHERAL CIRCULATION [None]
  - STAPHYLOCOCCAL SEPSIS [None]
  - THYMUS DISORDER [None]
  - VENOUS INJURY [None]
